FAERS Safety Report 7978951-0 (Version None)
Quarter: 2011Q4

REPORT INFORMATION
  Report Type: 
  Country: None (occurrence: None)
  Receive Date: 20111214
  Receipt Date: 20111130
  Transmission Date: 20120403
  Serious: Yes (Hospitalization, Other)
  Sender: FDA-Public Use
  Company Number: FR-PFIZER INC-K201100285

PATIENT
  Age: 67 Year
  Sex: Female

DRUGS (8)
  1. MOXONIDINE [Concomitant]
     Dosage: UNK
  2. EZETIMIBE [Concomitant]
     Dosage: UNK
  3. RAMIPRIL [Suspect]
     Dosage: 5 MG, 1X/DAY
     Route: 048
     Dates: start: 20080101, end: 20100501
  4. ALISKIREN [Suspect]
     Indication: HYPERTENSION
     Dosage: 1 DF, 1X/DAY
     Route: 048
     Dates: start: 20080101, end: 20100501
  5. OXYCODONE [Concomitant]
     Dosage: UNK
  6. MIRTAZAPINE [Concomitant]
     Dosage: UNK
  7. NALOXONE [Concomitant]
     Dosage: UNK
  8. CARVEDILOL [Concomitant]
     Dosage: UNK

REACTIONS (3)
  - BREAST CANCER [None]
  - BLOOD CREATININE INCREASED [None]
  - RENAL FAILURE [None]
